FAERS Safety Report 6229681-7 (Version None)
Quarter: 2009Q2

REPORT INFORMATION
  Report Type: 
  Country: None (occurrence: None)
  Receive Date: 20090615
  Receipt Date: 20090604
  Transmission Date: 20091009
  Serious: Yes (Hospitalization)
  Sender: FDA-Public Use
  Company Number: CH-ASTRAZENECA-2009PK01431

PATIENT
  Age: 78 Year
  Sex: Female
  Weight: 47 kg

DRUGS (6)
  1. ZESTRIL [Suspect]
     Route: 048
     Dates: end: 20090429
  2. NOVONORM [Interacting]
     Dosage: LONG TERM
     Route: 048
     Dates: end: 20090425
  3. PREDNISONE [Concomitant]
     Dosage: LONG TERM
     Route: 048
  4. ARAVA [Concomitant]
     Dosage: LONG TERM
     Route: 048
  5. LIPANTHYL [Concomitant]
     Dosage: LONG TERM
     Route: 048
     Dates: end: 20090429
  6. DAFALGAN [Concomitant]
     Dosage: LONG TERM
     Route: 048

REACTIONS (2)
  - DRUG INTERACTION [None]
  - HYPOGLYCAEMIA [None]
